FAERS Safety Report 15378250 (Version 1)
Quarter: 2018Q3

REPORT INFORMATION
  Report Type: Spontaneous
  Country: DE (occurrence: DE)
  Receive Date: 20180913
  Receipt Date: 20180913
  Transmission Date: 20181010
  Serious: Yes (Death)
  Sender: FDA-Public Use
  Company Number: DE-TEVA-2018-DE-952390

PATIENT
  Age: 98 Year
  Sex: Male
  Weight: 73 kg

DRUGS (2)
  1. OXYCODONE [Concomitant]
     Active Substance: OXYCODONE
     Indication: PALLIATIVE CARE
     Dosage: ON DAYS 2?4 OF HOSPITALISATION
     Route: 048
  2. MORPHINE [Suspect]
     Active Substance: MORPHINE
     Indication: PALLIATIVE CARE
     Dosage: 200MG/50ML; IV INFUSION; OR BOLUS (ASSUMED)
     Route: 042

REACTIONS (1)
  - Toxicity to various agents [Fatal]
